FAERS Safety Report 19963421 (Version 1)
Quarter: 2021Q4

REPORT INFORMATION
  Report Type: Spontaneous
  Country: US (occurrence: US)
  Receive Date: 20211014
  Receipt Date: 20211014
  Transmission Date: 20220303
  Serious: Yes (Hospitalization)
  Sender: FDA-Public Use
  Company Number: None

PATIENT
  Age: 86 Year
  Sex: Female

DRUGS (1)
  1. CAPECITABINE [Suspect]
     Active Substance: CAPECITABINE
     Indication: Pancreatic carcinoma
     Dosage: TAKE 2 TABLETS BY MOUTH TWICE DAILY WITH FOOD FOR 14 DAYS THEN 7 DAYS OFF
     Route: 058
     Dates: start: 20210901

REACTIONS (2)
  - Eye infection [None]
  - Diarrhoea [None]

NARRATIVE: CASE EVENT DATE: 20211001
